FAERS Safety Report 20138922 (Version 1)
Quarter: 2021Q4

REPORT INFORMATION
  Report Type: Spontaneous
  Country: CN (occurrence: CN)
  Receive Date: 20211202
  Receipt Date: 20211202
  Transmission Date: 20220303
  Serious: Yes (Hospitalization)
  Sender: FDA-Public Use
  Company Number: CN-BAXTER-2021BAX037859

PATIENT
  Age: 54 Year
  Sex: Female
  Weight: 48 kg

DRUGS (6)
  1. CYCLOPHOSPHAMIDE [Suspect]
     Active Substance: CYCLOPHOSPHAMIDE
     Indication: Breast cancer female
     Dosage: 1-3 CYCLES OF CHEMOTHERAPY
     Route: 041
  2. CYCLOPHOSPHAMIDE [Suspect]
     Active Substance: CYCLOPHOSPHAMIDE
     Dosage: 4TH CYCLE OF CHEMOTHERAPY
     Route: 041
     Dates: start: 20211105, end: 20211105
  3. SODIUM CHLORIDE [Suspect]
     Active Substance: SODIUM CHLORIDE
     Indication: Medication dilution
     Dosage: IV GTT CYCLOPHOSPHAMIDE FOR INJECTION PLUS 0.9% SODIUM CHLORIDE INJECTION
     Route: 041
     Dates: start: 20211105, end: 20211105
  4. SODIUM CHLORIDE [Suspect]
     Active Substance: SODIUM CHLORIDE
     Dosage: IV GTT DOCETAXEL INJECTION
     Route: 041
     Dates: start: 20211105, end: 20211105
  5. DOCETAXEL [Suspect]
     Active Substance: DOCETAXEL
     Indication: Breast cancer female
     Dosage: 1-3 CYCLES OF CHEMOTHERAPY
     Route: 041
  6. DOCETAXEL [Suspect]
     Active Substance: DOCETAXEL
     Dosage: 4TH CYCLE OF CHEMOTHERAPY
     Route: 041
     Dates: start: 20211105, end: 20211105

REACTIONS (3)
  - Myelosuppression [Recovering/Resolving]
  - Hepatic function abnormal [Recovering/Resolving]
  - Hepatic function abnormal [Recovered/Resolved]

NARRATIVE: CASE EVENT DATE: 20211114
